FAERS Safety Report 9340988 (Version 1)
Quarter: 2013Q2

REPORT INFORMATION
  Report Type: Spontaneous
  Country: US (occurrence: US)
  Receive Date: 20130610
  Receipt Date: 20130610
  Transmission Date: 20140414
  Serious: Yes (Life-Threatening)
  Sender: FDA-Public Use
  Company Number: CHPA2013US009552

PATIENT
  Age: 23 Year
  Sex: Female

DRUGS (4)
  1. EXCEDRIN MENSTRUAL COMPLETE [Suspect]
     Indication: DYSMENORRHOEA
     Dosage: UNK, UNK
     Route: 048
  2. EXCEDRIN ES BACK + BODY [Suspect]
     Indication: PAIN
     Dosage: UNK, UNK
     Route: 048
  3. EXCEDRIN MIGRAINE [Suspect]
     Indication: DYSMENORRHOEA
     Dosage: UNK, UNK
     Route: 048
  4. EXCEDRIN MIGRAINE [Suspect]
     Indication: MIGRAINE

REACTIONS (3)
  - Feeling abnormal [Not Recovered/Not Resolved]
  - Dysmenorrhoea [Not Recovered/Not Resolved]
  - Condition aggravated [Not Recovered/Not Resolved]
